FAERS Safety Report 16894134 (Version 1)
Quarter: 2019Q4

REPORT INFORMATION
  Report Type: Spontaneous
  Country: US (occurrence: US)
  Receive Date: 20191007
  Receipt Date: 20191007
  Transmission Date: 20200122
  Serious: No
  Sender: FDA-Public Use
  Company Number: None

PATIENT
  Age: 77 Year
  Sex: Female
  Weight: 75.6 kg

DRUGS (9)
  1. TIKOSYN [Concomitant]
     Active Substance: DOFETILIDE
  2. WARFARIN [Concomitant]
     Active Substance: WARFARIN
  3. PACEMAKER [Concomitant]
  4. ALPHA LIPOIC ACID [Concomitant]
     Active Substance: .ALPHA.-LIPOIC ACID
  5. VITAMIN D [Concomitant]
     Active Substance: VITAMIN D NOS
  6. VITAMIN B [Concomitant]
     Active Substance: VITAMIN B
  7. LOPRESSOR [Concomitant]
     Active Substance: METOPROLOL TARTRATE
  8. OXYCODONE/ACETAMINOPHEN [Suspect]
     Active Substance: ACETAMINOPHEN\OXYCODONE HYDROCHLORIDE
     Indication: PAIN
     Dosage: ?          QUANTITY:1 TABLET(S);?
     Route: 048
     Dates: start: 20191003, end: 20191006
  9. CALCIUM [Concomitant]
     Active Substance: CALCIUM

REACTIONS (5)
  - Micturition frequency decreased [None]
  - Product substitution issue [None]
  - Treatment failure [None]
  - Back pain [None]
  - Urine output decreased [None]

NARRATIVE: CASE EVENT DATE: 20191003
